FAERS Safety Report 8471323-4 (Version None)
Quarter: 2012Q2

REPORT INFORMATION
  Report Type: 
  Country: None (occurrence: None)
  Receive Date: 20120621
  Receipt Date: 20120608
  Transmission Date: 20120825
  Serious: Yes (Other)
  Sender: FDA-Public Use
  Company Number: 20120224

PATIENT
  Age: 15 Year
  Sex: Female
  Weight: 57 kg

DRUGS (1)
  1. VENOFER [Suspect]
     Indication: IRON DEFICIENCY ANAEMIA
     Dosage: 500 MG IN 250 ML, NS/35 MINUTES INTRAVENOUS DRIP
     Route: 041

REACTIONS (6)
  - SWELLING FACE [None]
  - OFF LABEL USE [None]
  - PAIN [None]
  - PULSE ABNORMAL [None]
  - ANXIETY [None]
  - HYPOTENSION [None]
